FAERS Safety Report 7405355-1 (Version None)
Quarter: 2011Q2

REPORT INFORMATION
  Report Type: 
  Country: None (occurrence: None)
  Receive Date: 20110411
  Receipt Date: 20110405
  Transmission Date: 20111010
  Serious: Yes (Life-Threatening, Hospitalization, Disabling, Other)
  Sender: FDA-Public Use
  Company Number: PHFR2011GB01790

PATIENT
  Sex: Male

DRUGS (4)
  1. LITHIUM [Concomitant]
     Indication: AFFECTIVE DISORDER
     Dosage: 800 MG, UNK
     Route: 048
  2. PROMETHAZINE [Concomitant]
     Dosage: 25 MG, QD
     Route: 048
  3. CLOZARIL [Suspect]
     Indication: SCHIZOPHRENIA
     Dosage: 500 MG, QD
     Route: 048
     Dates: start: 20100802
  4. CLONAZEPAM [Concomitant]
     Indication: AGITATION
     Dosage: 1 MG, BID

REACTIONS (5)
  - ACUTE MYOCARDIAL INFARCTION [None]
  - ALANINE AMINOTRANSFERASE INCREASED [None]
  - TROPONIN I INCREASED [None]
  - BLOOD CHOLESTEROL INCREASED [None]
  - ASPARTATE AMINOTRANSFERASE INCREASED [None]
